FAERS Safety Report 15027618 (Version 2)
Quarter: 2018Q4

REPORT INFORMATION
  Report Type: Spontaneous
  Country: DE (occurrence: DE)
  Receive Date: 20180619
  Receipt Date: 20181130
  Transmission Date: 20190204
  Serious: Yes (Life-Threatening, Hospitalization, Other)
  Sender: FDA-Public Use
  Company Number: DE-PHARMACEUTICS INTERNATIONAL, INC. (PII)-2018PII000021

PATIENT

DRUGS (2)
  1. ROPIVACAINE. [Concomitant]
     Active Substance: ROPIVACAINE HYDROCHLORIDE
     Indication: ANALGESIC THERAPY
     Dosage: INFUSION OF 4 0.2% ROPIVACAINE AT 4 ML/H
     Route: 008
  2. POTASSIUM CHLORIDE USP [Suspect]
     Active Substance: POTASSIUM CHLORIDE
     Indication: HYPOKALAEMIA
     Dosage: 900 MG, UNK
     Route: 008

REACTIONS (23)
  - Hypertension [Unknown]
  - Agitation [Unknown]
  - Paraesthesia [Recovered/Resolved]
  - Paresis [Recovered/Resolved]
  - Pneumonia [Unknown]
  - Lung disorder [Unknown]
  - Respiratory depression [Unknown]
  - Pain [Unknown]
  - Incorrect route of product administration [Unknown]
  - Ejection fraction decreased [Unknown]
  - Spinal cord paralysis [Recovered/Resolved]
  - Dyspnoea exertional [Unknown]
  - Quadriplegia [Recovered/Resolved]
  - Anal pruritus [Unknown]
  - Drug administered in wrong device [Unknown]
  - Pain in extremity [Unknown]
  - Loss of consciousness [Recovered/Resolved]
  - Accidental exposure to product [Unknown]
  - Abdominal pain upper [Unknown]
  - Pruritus generalised [Unknown]
  - Tachycardia [Unknown]
  - Stress cardiomyopathy [Unknown]
  - Acute myocardial infarction [Unknown]
